FAERS Safety Report 12992452 (Version 2)
Quarter: 2016Q4

REPORT INFORMATION
  Report Type: Report from Study
  Country: CN (occurrence: CN)
  Receive Date: 20161202
  Receipt Date: 20161216
  Transmission Date: 20170207
  Serious: Yes (Congenital Anomaly, Other)
  Sender: FDA-Public Use
  Company Number: PHHY2016CN164604

PATIENT
  Sex: Male

DRUGS (2)
  1. FOLATE [Suspect]
     Active Substance: FOLATE SODIUM
     Indication: FOETAL EXPOSURE DURING PREGNANCY
     Route: 065
  2. SEBIVO [Suspect]
     Active Substance: TELBIVUDINE
     Indication: FOETAL EXPOSURE DURING PREGNANCY
     Dosage: MATERNAL DOSE: 600 MG/DAY
     Route: 064

REACTIONS (7)
  - Branchiogenic syndrome [Unknown]
  - Foetal exposure during pregnancy [Unknown]
  - Micropenis [Unknown]
  - Foot deformity [Unknown]
  - Facial asymmetry [Unknown]
  - Cryptorchism [Unknown]
  - Mediastinum neoplasm [Unknown]
